FAERS Safety Report 17639031 (Version 1)
Quarter: 2020Q2

REPORT INFORMATION
  Report Type: Spontaneous
  Country: US (occurrence: US)
  Receive Date: 20200407
  Receipt Date: 20200407
  Transmission Date: 20200713
  Serious: No
  Sender: FDA-Public Use
  Company Number: US-SLATE RUN PHARMACEUTICALS-SLTR-AE-20-10

PATIENT
  Age: 83 Year
  Sex: Male
  Weight: 115 kg

DRUGS (17)
  1. ENTERIC-COATED ASPIRIN [Concomitant]
     Active Substance: ASPIRIN
  2. FLUOXETINE [Concomitant]
     Active Substance: FLUOXETINE HYDROCHLORIDE
  3. VANCOMYCIN [Concomitant]
     Active Substance: VANCOMYCIN
     Dosage: 3000 MG IV LOADING DOSE
     Route: 042
  4. DONEPEZIL. [Concomitant]
     Active Substance: DONEPEZIL
  5. ACETAMINOPHEN. [Concomitant]
     Active Substance: ACETAMINOPHEN
     Indication: PAIN MANAGEMENT
     Route: 048
  6. FUROSEMIDE. [Concomitant]
     Active Substance: FUROSEMIDE
     Route: 042
  7. 70436-019-82 AZITHROMYCIN FOR INJECTION DRY VIAL USP 500 MG [Suspect]
     Active Substance: AZITHROMYCIN
     Indication: ANTIBIOTIC THERAPY
     Route: 042
  8. LATANOPROST. [Concomitant]
     Active Substance: LATANOPROST
  9. GLIPIZIDE. [Concomitant]
     Active Substance: GLIPIZIDE
  10. HYDROCODONE [Concomitant]
     Active Substance: HYDROCODONE
     Indication: PAIN MANAGEMENT
     Route: 048
  11. DIGOXIN. [Concomitant]
     Active Substance: DIGOXIN
  12. METFORMIN [Concomitant]
     Active Substance: METFORMIN HYDROCHLORIDE
  13. CEFTRIAXONE. [Concomitant]
     Active Substance: CEFTRIAXONE
     Indication: PNEUMONIA
     Route: 042
  14. PIPERACILLIN AND TAZOBACTAM [Concomitant]
     Active Substance: PIPERACILLIN SODIUM\TAZOBACTAM SODIUM
     Dosage: 4.5G IV LOADING DOSE
     Route: 042
  15. MEMANTINE. [Concomitant]
     Active Substance: MEMANTINE
  16. RIVAROXABAN [Concomitant]
     Active Substance: RIVAROXABAN
  17. CHOLECALCIFEROL [Concomitant]
     Active Substance: CHOLECALCIFEROL

REACTIONS (10)
  - Hepatic enzyme increased [Recovering/Resolving]
  - Oedema peripheral [Unknown]
  - International normalised ratio increased [Recovering/Resolving]
  - Left ventricular failure [Unknown]
  - Hepatomegaly [Unknown]
  - Ejection fraction decreased [Unknown]
  - Dyspnoea [Unknown]
  - Acute kidney injury [Unknown]
  - Mental impairment [Not Recovered/Not Resolved]
  - Ascites [Unknown]
